FAERS Safety Report 10156984 (Version 1)
Quarter: 2014Q2

REPORT INFORMATION
  Report Type: Spontaneous
  Country: BR (occurrence: BR)
  Receive Date: 20140507
  Receipt Date: 20140507
  Transmission Date: 20141212
  Serious: Yes (Hospitalization, Other)
  Sender: FDA-Public Use
  Company Number: BR-009507513-1405BRA002364

PATIENT
  Sex: Female
  Weight: 61 kg

DRUGS (5)
  1. INTERFERON ALFA-2B [Suspect]
     Indication: HEPATITIS C
     Dosage: 1 DF, QW
     Route: 058
     Dates: start: 2005, end: 200612
  2. RIBAVIRIN [Concomitant]
     Indication: HEPATITIS C
     Dosage: 500 MG, BID
     Route: 048
     Dates: start: 2005, end: 200612
  3. AEROLIN [Concomitant]
     Indication: ASTHMA
     Dosage: UNK
     Dates: end: 2011
  4. BEROTEC [Concomitant]
     Indication: ASTHMA
     Dosage: UNK
     Dates: end: 2011
  5. FORASEQ [Concomitant]
     Indication: ASTHMA
     Dosage: 2 DF, QD
     Dates: start: 2011

REACTIONS (8)
  - Anaphylactic shock [Recovered/Resolved]
  - Bladder operation [Recovered/Resolved]
  - Pneumonia [Recovered/Resolved]
  - Drug hypersensitivity [Not Recovered/Not Resolved]
  - Hepatitis C RNA [Unknown]
  - Alopecia [Recovered/Resolved]
  - Weight decreased [Recovered/Resolved]
  - Drug ineffective [Recovered/Resolved]
